FAERS Safety Report 15540740 (Version 35)
Quarter: 2022Q3

REPORT INFORMATION
  Report Type: Report from Study
  Country: CN (occurrence: None)
  Receive Date: 20181023
  Receipt Date: 20220708
  Transmission Date: 20221027
  Serious: Yes (Hospitalization)
  Sender: FDA-Public Use
  Company Number: CN-ROCHE-2201634

PATIENT
  Age: 61 Year
  Sex: Female
  Weight: 56.5 kg

DRUGS (64)
  1. ATEZOLIZUMAB [Suspect]
     Active Substance: ATEZOLIZUMAB
     Indication: Ovarian cancer stage III
     Dosage: ON 30/SEP/2018, SHE RECEIVED HER MOST RECENT DOSE MG OF BLINDED ATEZOLIZUMAB PRIOR TO FIRST EPISODE
     Route: 041
     Dates: start: 20180930
  2. ATEZOLIZUMAB [Suspect]
     Active Substance: ATEZOLIZUMAB
     Dosage: ON 29/OCT/2018, SHE RECEIVED HER MOST RECENT DOSE MG OF BLINDED ATEZOLIZUMAB PRIOR TO SECOND EPISODE
     Route: 041
     Dates: start: 20181029
  3. PACLITAXEL [Suspect]
     Active Substance: PACLITAXEL
     Indication: Ovarian cancer stage III
     Dosage: ON 30/SEP/2018, SHE RECEIVED HER MOST RECENT DOSE 270.6MG OF PACLITAXEL PRIOR TO FIRST EPISODE OF MY
     Route: 042
     Dates: start: 20180930
  4. PACLITAXEL [Suspect]
     Active Substance: PACLITAXEL
     Dosage: ON 29/OCT/2018, SHE RECEIVED HER MOST RECENT DOSE 216.48 MG OF PACLITAXEL PRIOR TO SECOND EPISODE OF
     Route: 042
     Dates: start: 20181029
  5. CARBOPLATIN [Suspect]
     Active Substance: CARBOPLATIN
     Indication: Ovarian cancer stage III
     Dosage: ON 30/SEP/2018, SHE RECEIVED HER MOST RECENT DOSE 732.3 MG OF CARBOPLATIN PRIOR TO FIRST EPISODE OF
     Route: 042
     Dates: start: 20180930
  6. CARBOPLATIN [Suspect]
     Active Substance: CARBOPLATIN
     Dosage: TARGET AREA UNDER THE CURVE (AUC) OF 6  (MG/ML/MIN) ?ON 29/OCT/2018, SHE RECIVED HER MOST RECENT DOS
     Route: 042
     Dates: start: 20181029
  7. BEVACIZUMAB [Suspect]
     Active Substance: BEVACIZUMAB
     Indication: Ovarian cancer stage III
     Dosage: ON 29/OCT/2018, SHE RECEIVED HER MOST RECENT DOSE OF BEVACIZUMAB PRIOR TO THE SECOND EPISODE OF MYEL
     Route: 042
     Dates: start: 20181029
  8. GADOPENTETATE DIMEGLUMINE [Concomitant]
     Active Substance: GADOPENTETATE DIMEGLUMINE
     Dates: start: 20181024, end: 20181024
  9. GLYCYRRHIZIN [Concomitant]
     Active Substance: GLYCYRRHIZIN
     Dates: start: 20181111, end: 20181118
  10. LORATADINE [Concomitant]
     Active Substance: LORATADINE
     Indication: Rash
     Dates: start: 20180924, end: 20180926
  11. LORATADINE [Concomitant]
     Active Substance: LORATADINE
     Dates: start: 20181011, end: 20181014
  12. THROMBOPOIETIN [Concomitant]
     Active Substance: THROMBOPOIETIN
     Indication: Platelet count increased
     Dates: start: 20180926, end: 20180928
  13. THROMBOPOIETIN [Concomitant]
     Active Substance: THROMBOPOIETIN
     Dates: start: 20181015, end: 20181022
  14. THROMBOPOIETIN [Concomitant]
     Active Substance: THROMBOPOIETIN
     Dates: start: 20181001, end: 20181101
  15. THROMBOPOIETIN [Concomitant]
     Active Substance: THROMBOPOIETIN
     Route: 058
     Dates: start: 20181111, end: 20181117
  16. CALCIUM CHLORIDE\POTASSIUM CHLORIDE\SODIUM CHLORIDE [Concomitant]
     Active Substance: CALCIUM CHLORIDE\POTASSIUM CHLORIDE\SODIUM CHLORIDE
     Indication: Nutritional supplementation
     Dates: start: 20181029, end: 20181101
  17. CALCIUM CHLORIDE\POTASSIUM CHLORIDE\SODIUM CHLORIDE [Concomitant]
     Active Substance: CALCIUM CHLORIDE\POTASSIUM CHLORIDE\SODIUM CHLORIDE
     Dates: start: 20180929, end: 20181003
  18. SODIUM CHLORIDE [Concomitant]
     Active Substance: SODIUM CHLORIDE
     Indication: Nutritional supplementation
     Dates: start: 20180930, end: 20181003
  19. SODIUM CHLORIDE [Concomitant]
     Active Substance: SODIUM CHLORIDE
     Dates: start: 20181029, end: 20181029
  20. SODIUM CHLORIDE [Concomitant]
     Active Substance: SODIUM CHLORIDE
     Dates: start: 20190111, end: 20190113
  21. PALONOSETRON HYDROCHLORIDE [Concomitant]
     Active Substance: PALONOSETRON HYDROCHLORIDE
     Indication: Prophylaxis of nausea and vomiting
     Dates: start: 20180930, end: 20181003
  22. PALONOSETRON HYDROCHLORIDE [Concomitant]
     Active Substance: PALONOSETRON HYDROCHLORIDE
     Dates: start: 20181029, end: 20181101
  23. PALONOSETRON HYDROCHLORIDE [Concomitant]
     Active Substance: PALONOSETRON HYDROCHLORIDE
     Dates: start: 20190110, end: 20190110
  24. OMEPRAZOLE SODIUM [Concomitant]
     Active Substance: OMEPRAZOLE SODIUM
     Dosage: START DATE 30/SEP/2018
     Dates: start: 20180929, end: 20180930
  25. OMEPRAZOLE SODIUM [Concomitant]
     Active Substance: OMEPRAZOLE SODIUM
     Dates: start: 20180929, end: 20181101
  26. OMEPRAZOLE SODIUM [Concomitant]
     Active Substance: OMEPRAZOLE SODIUM
     Dates: start: 20181029, end: 20181101
  27. OMEPRAZOLE SODIUM [Concomitant]
     Active Substance: OMEPRAZOLE SODIUM
     Dates: start: 20190111, end: 20190113
  28. LIDOCAINE HYDROCHLORIDE [Concomitant]
     Active Substance: LIDOCAINE HYDROCHLORIDE
     Indication: Local anaesthesia
     Dates: start: 20180925, end: 20180925
  29. DEXAMETHASONE [Concomitant]
     Active Substance: DEXAMETHASONE
     Indication: Allergy prophylaxis
     Dates: start: 20180929, end: 20180930
  30. DEXAMETHASONE [Concomitant]
     Active Substance: DEXAMETHASONE
     Route: 048
     Dates: start: 20181029, end: 20181030
  31. DEXAMETHASONE [Concomitant]
     Active Substance: DEXAMETHASONE
     Dates: start: 20190130, end: 20190130
  32. DEXAMETHASONE [Concomitant]
     Active Substance: DEXAMETHASONE
     Route: 042
     Dates: start: 20190204, end: 20190204
  33. DEXAMETHASONE [Concomitant]
     Active Substance: DEXAMETHASONE
     Route: 055
     Dates: start: 20181018, end: 20181018
  34. DEXAMETHASONE [Concomitant]
     Active Substance: DEXAMETHASONE
     Route: 055
     Dates: start: 20181016, end: 20181016
  35. DEXAMETHASONE [Concomitant]
     Active Substance: DEXAMETHASONE
     Dosage: DOSE-19.5 (UNIT NOT REPORTED)
     Route: 048
     Dates: start: 20181028, end: 20181029
  36. DEXAMETHASONE [Concomitant]
     Active Substance: DEXAMETHASONE
     Route: 048
     Dates: start: 20190110, end: 20190111
  37. CIMETIDINE [Concomitant]
     Active Substance: CIMETIDINE
     Dates: start: 20180930, end: 20180930
  38. CIMETIDINE [Concomitant]
     Active Substance: CIMETIDINE
     Dates: start: 20190111, end: 20190111
  39. CIMETIDINE [Concomitant]
     Active Substance: CIMETIDINE
     Dates: start: 20181029, end: 20181029
  40. DIPHENHYDRAMINE HYDROCHLORIDE [Concomitant]
     Active Substance: DIPHENHYDRAMINE HYDROCHLORIDE
     Indication: Allergy prophylaxis
     Dates: start: 20180930, end: 20180930
  41. DIPHENHYDRAMINE HYDROCHLORIDE [Concomitant]
     Active Substance: DIPHENHYDRAMINE HYDROCHLORIDE
     Dates: start: 20190111, end: 20190111
  42. DIPHENHYDRAMINE HYDROCHLORIDE [Concomitant]
     Active Substance: DIPHENHYDRAMINE HYDROCHLORIDE
     Dates: start: 20181029, end: 20181029
  43. PALONOSETRON [Concomitant]
     Active Substance: PALONOSETRON
     Indication: Vomiting
     Dates: start: 20181029, end: 20181101
  44. PALONOSETRON [Concomitant]
     Active Substance: PALONOSETRON
     Dates: start: 20190111, end: 20190113
  45. DEXTROSE [Concomitant]
     Active Substance: DEXTROSE
     Indication: Nutritional supplementation
     Dates: start: 20181029, end: 20181101
  46. DEXTROSE [Concomitant]
     Active Substance: DEXTROSE
     Dates: start: 20190111, end: 20190113
  47. PROMETHAZINE [Concomitant]
     Active Substance: PROMETHAZINE HYDROCHLORIDE
     Dates: start: 20190130, end: 20190130
  48. PROMETHAZINE [Concomitant]
     Active Substance: PROMETHAZINE HYDROCHLORIDE
     Dates: start: 20190204, end: 20190204
  49. PROMETHAZINE [Concomitant]
     Active Substance: PROMETHAZINE HYDROCHLORIDE
     Dates: start: 20181018, end: 20181018
  50. PROMETHAZINE [Concomitant]
     Active Substance: PROMETHAZINE HYDROCHLORIDE
     Dates: start: 20181016, end: 20181016
  51. PANTOPRAZOLE [Concomitant]
     Active Substance: PANTOPRAZOLE
     Dates: start: 20181112, end: 20181118
  52. IODIXANOL [Concomitant]
     Active Substance: IODIXANOL
     Dates: start: 20190203, end: 20190203
  53. IODIXANOL [Concomitant]
     Active Substance: IODIXANOL
     Dates: start: 20200115, end: 20200115
  54. PROMETHAZINE HYDROCHLORIDE [Concomitant]
     Active Substance: PROMETHAZINE HYDROCHLORIDE
     Dates: start: 20181016, end: 20181016
  55. PROMETHAZINE HYDROCHLORIDE [Concomitant]
     Active Substance: PROMETHAZINE HYDROCHLORIDE
     Dates: start: 20181018, end: 20181018
  56. BUPLEURUM [Concomitant]
     Dates: start: 20190702
  57. CODONOPSIS [Concomitant]
     Dates: start: 20190702
  58. REHMANNIA [Concomitant]
     Dates: start: 20190702
  59. EPHEDRA [Concomitant]
     Active Substance: EPHEDRA
     Dates: start: 20190702
  60. CINNAMON [Concomitant]
     Active Substance: CINNAMON
     Dates: start: 20190702
  61. LICORICE [Concomitant]
     Active Substance: LICORICE
     Dates: start: 20190702
  62. CALAMINE [Concomitant]
     Active Substance: CALAMINE\FERRIC OXIDE RED\ZINC OXIDE
     Indication: Rash
     Dates: start: 20181111, end: 20181114
  63. CALAMINE [Concomitant]
     Active Substance: CALAMINE\FERRIC OXIDE RED\ZINC OXIDE
     Dates: start: 20181011, end: 20181014
  64. XIN RUI BAI [Concomitant]
     Dates: start: 20181001, end: 20181001

REACTIONS (2)
  - Platelet count decreased [Recovered/Resolved]
  - Myelosuppression [Not Recovered/Not Resolved]

NARRATIVE: CASE EVENT DATE: 20181011
